FAERS Safety Report 5627423-7 (Version None)
Quarter: 2008Q1

REPORT INFORMATION
  Report Type: 
  Country: None (occurrence: None)
  Receive Date: 20080214
  Receipt Date: 20080214
  Transmission Date: 20080703
  Serious: Yes (Life-Threatening)
  Sender: FDA-Public Use
  Company Number: None

PATIENT
  Age: 62 Year
  Sex: Female
  Weight: 107.5 kg

DRUGS (8)
  1. LEVAQUIN [Suspect]
     Dosage: 500 MG DAILY IV
     Route: 042
     Dates: start: 20071011, end: 20071017
  2. LEVAQUIN [Suspect]
     Dosage: 750 MG DAILY IV
     Route: 042
     Dates: start: 20071017, end: 20071017
  3. LISINOPRIL [Concomitant]
  4. DARVOCET [Concomitant]
  5. GLYBURIDE [Concomitant]
  6. VERAPAMIL [Concomitant]
  7. PROTONIX [Concomitant]
  8. CLONIDINE [Concomitant]

REACTIONS (1)
  - TORSADE DE POINTES [None]
